FAERS Safety Report 10243732 (Version 3)
Quarter: 2014Q4

REPORT INFORMATION
  Report Type: Spontaneous
  Country: US (occurrence: None)
  Receive Date: 20140616
  Receipt Date: 20141030
  Transmission Date: 20150528
  Serious: Yes (Other)
  Sender: FDA-Public Use
  Company Number: 2013-US-003168

PATIENT
  Age: 18 Year
  Sex: Male

DRUGS (2)
  1. XYREM [Suspect]
     Active Substance: SODIUM OXYBATE
     Indication: NARCOLEPSY
     Route: 048
     Dates: start: 201301, end: 2013
  2. ALL OTHER THERAPEUTIC PRODUCTS [Suspect]
     Active Substance: UNSPECIFIED INGREDIENT
     Indication: ANXIETY

REACTIONS (8)
  - Vomiting [None]
  - Decreased appetite [None]
  - Weight decreased [None]
  - Drug dose omission [None]
  - Anxiety [None]
  - Nausea [None]
  - Malaise [None]
  - Performance status decreased [None]

NARRATIVE: CASE EVENT DATE: 20131011
